FAERS Safety Report 4728240-2 (Version None)
Quarter: 2005Q3

REPORT INFORMATION
  Report Type: 
  Country: None (occurrence: None)
  Receive Date: 20050727
  Receipt Date: 20050710
  Transmission Date: 20060218
  Serious: Yes (Hospitalization)
  Sender: FDA-Public Use
  Company Number: 2005-01473

PATIENT
  Age: 60 Year
  Sex: Male
  Weight: 65.0005 kg

DRUGS (1)
  1. VELCADE [Suspect]
     Indication: MULTIPLE MYELOMA
     Dosage: 0.80 MG/M2 2/WEEK IV BOLUS
     Route: 040
     Dates: start: 20050615, end: 20050625

REACTIONS (4)
  - DISEASE RECURRENCE [None]
  - MULTIPLE MYELOMA [None]
  - NEPHRITIS INTERSTITIAL [None]
  - RENAL IMPAIRMENT [None]
